FAERS Safety Report 7585510-0 (Version None)
Quarter: 2011Q2

REPORT INFORMATION
  Report Type: 
  Country: None (occurrence: None)
  Receive Date: 20110624
  Receipt Date: 20110610
  Transmission Date: 20111010
  Serious: Yes (Hospitalization, Other)
  Sender: FDA-Public Use
  Company Number: 2011MA007082

PATIENT
  Age: 19 Year
  Sex: Male

DRUGS (1)
  1. IBUPROFEN [Suspect]
     Indication: OVERDOSE
     Dosage: 90000 MG 1X

REACTIONS (7)
  - BLOOD POTASSIUM INCREASED [None]
  - TACHYCARDIA [None]
  - MUSCLE TWITCHING [None]
  - BLOOD PRESSURE DECREASED [None]
  - POLYURIA [None]
  - METABOLIC ACIDOSIS [None]
  - OVERDOSE [None]
